FAERS Safety Report 6580545-9 (Version None)
Quarter: 2010Q1

REPORT INFORMATION
  Report Type: 
  Country: None (occurrence: None)
  Receive Date: 20100212
  Receipt Date: 20100205
  Transmission Date: 20100710
  Serious: Yes (Other)
  Sender: FDA-Public Use
  Company Number: US-PFIZER INC-2010017098

PATIENT
  Sex: Male
  Weight: 128.36 kg

DRUGS (11)
  1. CHANTIX [Suspect]
     Indication: SMOKING CESSATION THERAPY
     Dosage: 0.5 MG, 1X/DAY
     Dates: end: 20100101
  2. NIASPAN [Concomitant]
     Indication: BLOOD CHOLESTEROL
     Dosage: 2000 MG, 1X/DAY
  3. ZETIA [Concomitant]
     Dosage: UNK
  4. CINNAMON [Concomitant]
     Dosage: UNK
  5. ACETYLSALICYLIC ACID [Concomitant]
     Dosage: UNK DAILY
  6. GLIMEPIRIDE [Concomitant]
     Indication: DIABETES MELLITUS
     Dosage: UNK
  7. HYDROCODONE [Concomitant]
     Indication: PAIN
     Dosage: FREQUENCY: AS NEEDED,
  8. ONE-A-DAY [Concomitant]
     Dosage: UNK DAILY
  9. LESCOL [Concomitant]
  10. ACIPHEX [Concomitant]
     Indication: GASTROOESOPHAGEAL REFLUX DISEASE
     Dosage: UNK
  11. METFORMIN HCL/PIOGLITAZONE HCL [Concomitant]
     Dosage: UNK

REACTIONS (2)
  - GAIT DISTURBANCE [None]
  - MYALGIA [None]
